FAERS Safety Report 8997791 (Version 1)
Quarter: 2013Q1

REPORT INFORMATION
  Report Type: Spontaneous
  Country: None (occurrence: IR)
  Receive Date: 20130105
  Receipt Date: 20130105
  Transmission Date: 20140127
  Serious: Yes (Other)
  Sender: FDA-Public Use
  Company Number: IR-SANTEN INC.-INC-13-000002

PATIENT
  Age: 45 Year
  Sex: Male

DRUGS (1)
  1. OFTAQUIX [Suspect]
     Route: 061
     Dates: start: 20121123, end: 20121124

REACTIONS (2)
  - Ulcerative keratitis [Unknown]
  - Overdose [Unknown]
